FAERS Safety Report 6062994-0 (Version None)
Quarter: 2009Q1

REPORT INFORMATION
  Report Type: 
  Country: None (occurrence: None)
  Receive Date: 20090203
  Receipt Date: 20090130
  Transmission Date: 20090719
  Serious: Yes (Other)
  Sender: FDA-Public Use
  Company Number: B0556687A

PATIENT
  Age: 9 Year
  Sex: Female

DRUGS (5)
  1. RELENZA [Suspect]
     Indication: DRUG USE FOR UNKNOWN INDICATION
     Route: 055
  2. TAVEGYL [Concomitant]
     Route: 048
  3. ASVERIN [Concomitant]
     Route: 048
  4. MUCOSOLVAN [Concomitant]
     Route: 048
  5. HOKUNALIN [Concomitant]
     Route: 062

REACTIONS (4)
  - ABNORMAL BEHAVIOUR [None]
  - DIZZINESS [None]
  - HALLUCINATION [None]
  - NAUSEA [None]
